FAERS Safety Report 18690503 (Version 1)
Quarter: 2020Q4

REPORT INFORMATION
  Report Type: Other
  Country: AR (occurrence: AR)
  Receive Date: 20201231
  Receipt Date: 20201231
  Transmission Date: 20210114
  Serious: Yes (Other)
  Sender: FDA-Public Use
  Company Number: AR-ROCHE-2742354

PATIENT
  Age: 77 Year
  Sex: Male

DRUGS (2)
  1. XOLAIR [Suspect]
     Active Substance: OMALIZUMAB
     Dosage: 1200 MG, QMO
     Route: 058
     Dates: start: 20161123
  2. XOLAIR [Suspect]
     Active Substance: OMALIZUMAB
     Indication: ASTHMA
     Dosage: 1200 MG, QMO
     Route: 058
     Dates: start: 20160923

REACTIONS (1)
  - Deafness [Unknown]
